FAERS Safety Report 13307852 (Version 1)
Quarter: 2017Q1

REPORT INFORMATION
  Report Type: Spontaneous
  Country: TR (occurrence: TR)
  Receive Date: 20170308
  Receipt Date: 20170308
  Transmission Date: 20170428
  Serious: Yes (Hospitalization)
  Sender: FDA-Public Use
  Company Number: TR-ALLERGAN-1707378US

PATIENT
  Age: 22 Day
  Sex: Female
  Weight: 3.7 kg

DRUGS (1)
  1. BRIMONIDINE [Suspect]
     Active Substance: BRIMONIDINE TARTRATE
     Indication: PRODUCT USED FOR UNKNOWN INDICATION
     Dosage: 7 GTT, SINGLE
     Route: 048

REACTIONS (2)
  - Incorrect route of drug administration [Unknown]
  - Pallor [Unknown]
